FAERS Safety Report 4273070-1 (Version None)
Quarter: 2004Q1

REPORT INFORMATION
  Report Type: 
  Country: None (occurrence: None)
  Receive Date: 20040114
  Receipt Date: 20040105
  Transmission Date: 20041129
  Serious: Yes (Life-Threatening, Other)
  Sender: FDA-Public Use
  Company Number: HQWYE061306JAN04

PATIENT
  Age: 80 Year
  Sex: Female

DRUGS (5)
  1. INDERAL [Suspect]
     Indication: SINUS TACHYCARDIA
     Route: 048
     Dates: start: 20030810, end: 20030812
  2. MERCAZOLE (THIAMAZOLE) [Concomitant]
  3. BLOPRESS (CANDESARTAN CILEXETIL) [Concomitant]
  4. MADOPAR (BENSERAZIDE HYDROCHLORIDE / LEVODOPA) [Concomitant]
  5. SEREVENT [Concomitant]

REACTIONS (9)
  - BLOOD CREATINE PHOSPHOKINASE INCREASED [None]
  - BLOOD POTASSIUM INCREASED [None]
  - BLOOD SODIUM DECREASED [None]
  - BLOOD UREA INCREASED [None]
  - CARDIAC ARREST [None]
  - ELECTROCARDIOGRAM ST SEGMENT ELEVATION [None]
  - VENTRICULAR FLUTTER [None]
  - VENTRICULAR TACHYCARDIA [None]
  - WHITE BLOOD CELL COUNT INCREASED [None]
